FAERS Safety Report 12779795 (Version 1)
Quarter: 2016Q3

REPORT INFORMATION
  Report Type: Spontaneous
  Country: US (occurrence: US)
  Receive Date: 20160926
  Receipt Date: 20160926
  Transmission Date: 20161109
  Serious: No
  Sender: FDA-Public Use
  Company Number: US-MYLANLABS-2016M1003428

PATIENT
  Sex: Male
  Weight: 113.38 kg

DRUGS (4)
  1. FISH OIL NATURE MADE [Concomitant]
     Dosage: UNK
     Route: 065
  2. FUROSEMIDE TABLETS USP [Suspect]
     Active Substance: FUROSEMIDE
     Dosage: 20 MG, BID
     Route: 048
  3. FUROSEMIDE TABLETS USP [Suspect]
     Active Substance: FUROSEMIDE
     Dosage: 40 MG, UNK
  4. CASCARA SAGRADA                    /00143201/ [Concomitant]
     Active Substance: FRANGULA PURSHIANA BARK
     Dosage: UNK
     Route: 065

REACTIONS (1)
  - Drug effect decreased [Not Recovered/Not Resolved]
